FAERS Safety Report 7760416-2 (Version None)
Quarter: 2011Q3

REPORT INFORMATION
  Report Type: 
  Country: None (occurrence: None)
  Receive Date: 20110919
  Receipt Date: 20101217
  Transmission Date: 20111222
  Serious: Yes (Hospitalization)
  Sender: FDA-Public Use
  Company Number: US-BAYER-201024609NA

PATIENT
  Age: 28 Year
  Sex: Female
  Weight: 82.993 kg

DRUGS (18)
  1. FIBER [Concomitant]
  2. PAMELOR [Concomitant]
  3. TOPROL-XL [Concomitant]
  4. PROMETHAZINE HYDROCHLORIDE [Concomitant]
     Indication: NAUSEA
     Dosage: 25 MG, PRN
     Route: 048
  5. YAZ [Suspect]
     Indication: ALOPECIA
  6. FISH OIL [Concomitant]
  7. ACETAMINOPHEN [Concomitant]
  8. ACIPHEX [Concomitant]
     Dosage: 20 MG, QD
     Route: 048
  9. XANAX [Concomitant]
     Dosage: 1 MG, PRN
     Route: 048
  10. YAZ [Suspect]
     Indication: ACNE
     Route: 048
     Dates: start: 20070601, end: 20090101
  11. YAZ [Suspect]
     Indication: HORMONE LEVEL ABNORMAL
  12. VITAMIN E [Concomitant]
  13. DIFFERIN [Concomitant]
  14. LODINE XL [Concomitant]
     Indication: PAIN
     Dosage: 400 MG, BID
     Route: 048
  15. NEXIUM [Concomitant]
     Dosage: 40 MG, QD
     Route: 048
  16. BIOTIN [Concomitant]
  17. ZOLOFT [Concomitant]
     Indication: ANXIETY
     Dates: start: 20040101
  18. TYLENOL-500 [Concomitant]

REACTIONS (12)
  - CHOLELITHIASIS [None]
  - CONSTIPATION [None]
  - ABDOMINAL PAIN [None]
  - VOMITING [None]
  - PAIN [None]
  - GALLBLADDER PAIN [None]
  - POST PROCEDURAL COMPLICATION [None]
  - CHOLECYSTITIS CHRONIC [None]
  - ABDOMINAL PAIN UPPER [None]
  - SPLENOMEGALY [None]
  - NAUSEA [None]
  - PORTAL TRIADITIS [None]
